FAERS Safety Report 11294100 (Version 2)
Quarter: 2015Q3

REPORT INFORMATION
  Report Type: Report from Study
  Country: US (occurrence: US)
  Receive Date: 20150722
  Receipt Date: 20150819
  Transmission Date: 20151125
  Serious: Yes (Hospitalization)
  Sender: FDA-Public Use
  Company Number: US-AMGEN-USASL2015041141

PATIENT
  Age: 80 Year
  Sex: Male

DRUGS (2)
  1. PROCRIT [Concomitant]
     Active Substance: ERYTHROPOIETIN
     Dosage: UNK
     Route: 065
  2. KYPROLIS [Suspect]
     Active Substance: CARFILZOMIB
     Indication: PLASMA CELL MYELOMA
     Dosage: 55 MG, 2 TIMES/WK
     Route: 042
     Dates: start: 2013, end: 201507

REACTIONS (11)
  - Frustration [Unknown]
  - Fall [Unknown]
  - Somnolence [Not Recovered/Not Resolved]
  - Night sweats [Unknown]
  - Fracture [Unknown]
  - Pyrexia [Unknown]
  - Renal disorder [Unknown]
  - Mobility decreased [Unknown]
  - Laziness [Unknown]
  - Pain [Unknown]
  - Micturition urgency [Not Recovered/Not Resolved]

NARRATIVE: CASE EVENT DATE: 2013
